FAERS Safety Report 6086872-6 (Version None)
Quarter: 2009Q1

REPORT INFORMATION
  Report Type: 
  Country: None (occurrence: None)
  Receive Date: 20090223
  Receipt Date: 20090212
  Transmission Date: 20090719
  Serious: Yes (Other)
  Sender: FDA-Public Use
  Company Number: US-PFIZER INC-2009169774

PATIENT
  Sex: Female
  Weight: 68 kg

DRUGS (3)
  1. ACCUPRIL [Suspect]
     Indication: HYPERTENSION
     Dosage: 10 MG, 1X/DAY
  2. ACCUPRIL [Suspect]
     Dosage: 20 MG, 1X/DAY
  3. ACETYLSALICYLIC ACID [Concomitant]
     Dosage: UNK

REACTIONS (3)
  - BLOOD PRESSURE INCREASED [None]
  - CREATININE RENAL CLEARANCE DECREASED [None]
  - GLAUCOMA [None]
